FAERS Safety Report 7048192-2 (Version None)
Quarter: 2010Q4

REPORT INFORMATION
  Report Type: 
  Country: None (occurrence: None)
  Receive Date: 20101015
  Receipt Date: 20101012
  Transmission Date: 20110411
  Serious: Yes (Hospitalization)
  Sender: FDA-Public Use
  Company Number: US-RB-016597-10

PATIENT
  Age: 60 Year
  Sex: Male

DRUGS (3)
  1. SUBOXONE TABLETS [Suspect]
     Indication: DRUG DEPENDENCE
     Route: 060
     Dates: start: 20100801, end: 20100923
  2. AGGRENOX [Suspect]
     Indication: CORONARY ARTERY DISEASE
     Route: 065
     Dates: end: 20100923
  3. AGGRENOX [Suspect]
     Indication: CEREBROVASCULAR ACCIDENT
     Route: 065
     Dates: end: 20100923

REACTIONS (3)
  - FACIAL ASYMMETRY [None]
  - SOMNOLENCE [None]
  - WEIGHT DECREASED [None]
